FAERS Safety Report 6475231-X (Version None)
Quarter: 2009Q4

REPORT INFORMATION
  Report Type: 
  Country: None (occurrence: None)
  Receive Date: 20091123
  Receipt Date: 20090929
  Transmission Date: 20100525
  Serious: No
  Sender: FDA-Public Use
  Company Number: 8052735

PATIENT
  Age: 60 Year
  Sex: Female
  Weight: 63.6 kg

DRUGS (9)
  1. CIMZIA [Suspect]
     Indication: CROHN'S DISEASE
     Dosage: 400 MG SC
     Route: 058
     Dates: start: 20090526
  2. DICYCLOMINE [Concomitant]
  3. DILTIAZEM [Concomitant]
  4. B COMPLEX /00212701 [Concomitant]
  5. CALCIUM D /01272001/ [Concomitant]
  6. AZATHIOPRINE [Concomitant]
  7. FOSAMAX [Concomitant]
  8. MELOXICAM [Concomitant]
  9. MULTI-VITAMIN [Concomitant]

REACTIONS (1)
  - LOCALISED INFECTION [None]
